FAERS Safety Report 4755136-2 (Version None)
Quarter: 2005Q3

REPORT INFORMATION
  Report Type: 
  Country: None (occurrence: None)
  Receive Date: 20050829
  Receipt Date: 20050823
  Transmission Date: 20060218
  Serious: Yes (Other)
  Sender: FDA-Public Use
  Company Number: 200511887DE

PATIENT
  Age: 37 Year
  Sex: Female
  Weight: 51 kg

DRUGS (4)
  1. ARAVA [Suspect]
     Indication: RHEUMATOID ARTHRITIS
     Dates: start: 20040701, end: 20050818
  2. DECORTIN [Concomitant]
     Indication: RHEUMATOID ARTHRITIS
     Route: 048
     Dates: start: 20050401
  3. OS-CAL D [Concomitant]
     Indication: PROPHYLAXIS
     Route: 048
     Dates: start: 20050601
  4. VALPROATE SODIUM [Concomitant]
     Indication: EPILEPSY
     Route: 048
     Dates: start: 19950101

REACTIONS (2)
  - GRANULOCYTOPENIA [None]
  - LYMPHADENOPATHY [None]
